FAERS Safety Report 15234502 (Version 1)
Quarter: 2018Q3

REPORT INFORMATION
  Report Type: Spontaneous
  Country: US (occurrence: US)
  Receive Date: 20180803
  Receipt Date: 20180803
  Transmission Date: 20181010
  Serious: No
  Sender: FDA-Public Use
  Company Number: US-TEVA-2018-US-934856

PATIENT
  Age: 65 Year
  Sex: Female

DRUGS (1)
  1. ESTRADIOL VALERATE. [Suspect]
     Active Substance: ESTRADIOL VALERATE
     Indication: POSTMENOPAUSE
     Route: 065
     Dates: start: 1998

REACTIONS (2)
  - Hypertension [Unknown]
  - Fluid retention [Unknown]

NARRATIVE: CASE EVENT DATE: 2016
